FAERS Safety Report 23791113 (Version 2)
Quarter: 2024Q2

REPORT INFORMATION
  Report Type: Spontaneous
  Country: US (occurrence: None)
  Receive Date: 20240428
  Receipt Date: 20240507
  Transmission Date: 20240716
  Serious: Yes (Hospitalization, Other)
  Sender: FDA-Public Use
  Company Number: 2024A089148

PATIENT
  Age: 22946 Day
  Sex: Female
  Weight: 50.3 kg

DRUGS (7)
  1. TRUQAP [Suspect]
     Active Substance: CAPIVASERTIB
     Indication: Breast cancer metastatic
     Dosage: DAYS 1-4, 8-11, 15-18, 22-25
     Route: 048
     Dates: start: 20240401
  2. TRUQAP [Suspect]
     Active Substance: CAPIVASERTIB
     Indication: Breast cancer
     Dosage: DAYS 1-4, 8-11, 15-18, 22-25
     Route: 048
     Dates: start: 20240401
  3. TRUQAP [Suspect]
     Active Substance: CAPIVASERTIB
     Indication: Breast cancer metastatic
     Route: 048
  4. TRUQAP [Suspect]
     Active Substance: CAPIVASERTIB
     Indication: Breast cancer
     Route: 048
  5. TRUQAP [Suspect]
     Active Substance: CAPIVASERTIB
     Indication: Breast cancer metastatic
     Dosage: 400 MG AM, 200 MG PM
     Route: 048
     Dates: start: 20240429
  6. TRUQAP [Suspect]
     Active Substance: CAPIVASERTIB
     Indication: Breast cancer
     Dosage: 400 MG AM, 200 MG PM
     Route: 048
     Dates: start: 20240429
  7. PREDNISONE [Concomitant]
     Active Substance: PREDNISONE
     Route: 048

REACTIONS (4)
  - Rash [Recovered/Resolved]
  - Pneumothorax [Unknown]
  - Pleural effusion [Recovered/Resolved]
  - Pulmonary embolism [Unknown]

NARRATIVE: CASE EVENT DATE: 20240407
